FAERS Safety Report 9812630 (Version 2)
Quarter: 2014Q1

REPORT INFORMATION
  Report Type: Report from Study
  Country: FR (occurrence: FR)
  Receive Date: 20140113
  Receipt Date: 20140128
  Transmission Date: 20141002
  Serious: Yes (Other)
  Sender: FDA-Public Use
  Company Number: FR-ROCHE-1330122

PATIENT
  Age: 75 Year
  Sex: Female

DRUGS (9)
  1. RITUXIMAB [Suspect]
     Indication: RHEUMATOID ARTHRITIS
     Route: 065
     Dates: start: 20060228
  2. RITUXIMAB [Suspect]
     Route: 065
     Dates: start: 20060315
  3. RITUXIMAB [Suspect]
     Route: 065
     Dates: start: 20070117
  4. RITUXIMAB [Suspect]
     Route: 065
     Dates: start: 20080911
  5. RITUXIMAB [Suspect]
     Route: 065
     Dates: start: 20110602
  6. RITUXIMAB [Suspect]
     Route: 065
     Dates: start: 20120320
  7. RITUXIMAB [Suspect]
     Route: 065
     Dates: start: 20121010
  8. METHOTREXATE [Concomitant]
     Route: 065
  9. CORTANCYL [Concomitant]
     Route: 065

REACTIONS (3)
  - Pulmonary fibrosis [Not Recovered/Not Resolved]
  - Rib fracture [Recovered/Resolved]
  - Bronchitis [Recovered/Resolved]
